FAERS Safety Report 9103746 (Version 1)
Quarter: 2013Q1

REPORT INFORMATION
  Report Type: Report from Study
  Country: US (occurrence: US)
  Receive Date: 20130219
  Receipt Date: 20130219
  Transmission Date: 20140127
  Serious: No
  Sender: FDA-Public Use
  Company Number: US-VERTEX PHARMACEUTICALS INC.-2013-002027

PATIENT
  Sex: Female

DRUGS (5)
  1. VX-950 (TELAPREVIR) [Suspect]
     Indication: HEPATITIS C
     Dosage: UNK, TID
     Route: 048
     Dates: start: 2012, end: 20130122
  2. RIBAPAK [Suspect]
     Indication: HEPATITIS C
     Dosage: 600 MG AM/400 MG PM, BID
     Dates: start: 2012
  3. RIBAPAK [Suspect]
     Dosage: 400 MG, QD
  4. PEGASYS [Suspect]
     Indication: HEPATITIS C
     Dosage: 180 ?G, UNK
     Route: 058
     Dates: start: 2012
  5. AMBIEN CR [Concomitant]
     Dosage: 12.5 MG, QD

REACTIONS (4)
  - Blood count abnormal [Unknown]
  - Alopecia [Unknown]
  - Anaemia [Unknown]
  - Pruritus [Unknown]
